FAERS Safety Report 9054041 (Version 2)
Quarter: 2014Q3

REPORT INFORMATION
  Report Type: Spontaneous
  Country: JP (occurrence: JP)
  Receive Date: 20130208
  Receipt Date: 20140916
  Transmission Date: 20150326
  Serious: Yes (Other)
  Sender: FDA-Public Use
  Company Number: JP-ASTELLAS-2013JP001333

PATIENT
  Age: 18 Year
  Sex: Male

DRUGS (2)
  1. PREDONINE [Suspect]
     Active Substance: PREDNISOLONE\PREDNISOLONE ACETATE\PREDNISOLONE SODIUM SUCCINATE
     Indication: ACUTE GRAFT VERSUS HOST DISEASE
     Dosage: UNK, UNKNOWN FREQ.
     Route: 065
     Dates: start: 201003, end: 201012
  2. PROGRAF [Suspect]
     Active Substance: TACROLIMUS\TACROLIMUS ANHYDROUS
     Indication: PROPHYLAXIS AGAINST GRAFT VERSUS HOST DISEASE
     Dosage: UNK, UNKNOWN FREQ.
     Route: 065
     Dates: start: 2010, end: 201101

REACTIONS (1)
  - Porokeratosis [Not Recovered/Not Resolved]

NARRATIVE: CASE EVENT DATE: 2011
